FAERS Safety Report 6783248-0 (Version None)
Quarter: 2010Q2

REPORT INFORMATION
  Report Type: 
  Country: None (occurrence: None)
  Receive Date: 20100622
  Receipt Date: 20100614
  Transmission Date: 20101027
  Serious: Yes (Hospitalization)
  Sender: FDA-Public Use
  Company Number: US-SANOFI-AVENTIS-2010SA035330

PATIENT
  Age: 61 Year
  Sex: Female
  Weight: 72.56 kg

DRUGS (4)
  1. PLAVIX [Suspect]
     Route: 048
     Dates: start: 20060601
  2. CAPTOPRIL [Concomitant]
  3. SPIRONOLACTONE [Concomitant]
  4. TOPROL-XL [Concomitant]

REACTIONS (4)
  - BRONCHITIS [None]
  - CHRONIC OBSTRUCTIVE PULMONARY DISEASE [None]
  - CONTUSION [None]
  - OFF LABEL USE [None]
